FAERS Safety Report 6369397-X (Version None)
Quarter: 2009Q3

REPORT INFORMATION
  Report Type: 
  Country: None (occurrence: None)
  Receive Date: 20090917
  Receipt Date: 20090910
  Transmission Date: 20100115
  Serious: Yes (Other)
  Sender: FDA-Public Use
  Company Number: 2008AL012400

PATIENT
  Age: 78 Year
  Sex: Female

DRUGS (53)
  1. DIGOXIN [Suspect]
     Indication: ARRHYTHMIA
     Dosage: 0.125MG, DAILY, PO
     Route: 048
     Dates: start: 20080201, end: 20090124
  2. LEVOTHYROXINE SODIUM [Concomitant]
  3. LOVASTATIN [Concomitant]
  4. AMIODARONE HCL [Concomitant]
  5. PROMETHAZINE [Concomitant]
  6. ZOLPIDEM [Concomitant]
  7. MEXILETINE HYDROCHLORIDE [Concomitant]
  8. ZETIA [Concomitant]
  9. PHOSLO [Concomitant]
  10. ALLOPURINOL [Concomitant]
  11. METOPROLOL SUCCINATE [Concomitant]
  12. GENTAMICIN [Concomitant]
  13. AMBIEN [Concomitant]
  14. MECLIZINE [Concomitant]
  15. RENAL SOFT [Concomitant]
  16. GEL [Concomitant]
  17. NITROGLYCERIN [Concomitant]
  18. RENAGEL [Concomitant]
  19. MIDODRINE HYDROCHLORIDE [Concomitant]
  20. CHERATUSSIN [Concomitant]
  21. MAG-OXIDE [Concomitant]
  22. SENSIPAR [Concomitant]
  23. ISOSORBIDE [Concomitant]
  24. TOPROL-XL [Concomitant]
  25. POTASSIUM CHLORIDE [Concomitant]
  26. METOLAZONE [Concomitant]
  27. TORSEMIDE [Concomitant]
  28. PLAVIX [Concomitant]
  29. FOLGARD [Concomitant]
  30. CLOPIDOGREL [Concomitant]
  31. DIOVAN [Concomitant]
  32. HYDRALAZINE [Concomitant]
  33. FOLPLEX [Concomitant]
  34. GALATRO [Concomitant]
  35. ASPIRIN [Concomitant]
  36. COMPAZINE [Concomitant]
  37. ATROPINE [Concomitant]
  38. EPOGEN [Concomitant]
  39. LORAZEPAM [Concomitant]
  40. PRILOSEC [Concomitant]
  41. NITROGLYCERIN [Concomitant]
  42. MULTI-VITAMINS [Concomitant]
  43. OXYGEN [Concomitant]
  44. ROXANOL [Concomitant]
  45. TYLENOL (CAPLET) [Concomitant]
  46. SYNTHROID [Concomitant]
  47. STRESS FORMULA TABLETS [Concomitant]
  48. NORVASC [Concomitant]
  49. COREG [Concomitant]
  50. TEMAZEPAM [Concomitant]
  51. COLCHICINES [Concomitant]
  52. ALLOPURINOL [Concomitant]
  53. SPIRIVA [Concomitant]

REACTIONS (7)
  - ANAEMIA [None]
  - EJECTION FRACTION DECREASED [None]
  - MULTIPLE INJURIES [None]
  - MYOCARDIAL ISCHAEMIA [None]
  - PERITONEAL DIALYSIS [None]
  - RENAL FAILURE CHRONIC [None]
  - THERAPEUTIC AGENT TOXICITY [None]
